FAERS Safety Report 5084715-0 (Version None)
Quarter: 2006Q3

REPORT INFORMATION
  Report Type: 
  Country: None (occurrence: None)
  Receive Date: 20060815
  Receipt Date: 20060731
  Transmission Date: 20061208
  Serious: Yes (Other)
  Sender: FDA-Public Use
  Company Number: 2006AL002052

PATIENT
  Age: 46 Year
  Sex: Female

DRUGS (5)
  1. CARBIDOPA AND LEVODOPA TABLETS USP, 25MG/250MG (PUREPAC) (CARBIDOPA AN [Suspect]
     Indication: PARKINSON'S DISEASE
     Dosage: PO
     Route: 048
  2. PRAMIPEXOLE DIHYDROCHLORIDE [Concomitant]
  3. AMOXICILLIN [Concomitant]
  4. QUININE SULFATE [Concomitant]
  5. SERTRALINE [Concomitant]

REACTIONS (4)
  - ANAPHYLACTIC REACTION [None]
  - DRUG INTERACTION [None]
  - EYE SWELLING [None]
  - SWELLING FACE [None]
